FAERS Safety Report 5157534-4 (Version None)
Quarter: 2006Q4

REPORT INFORMATION
  Report Type: 
  Country: None (occurrence: None)
  Receive Date: 20061127
  Receipt Date: 20061110
  Transmission Date: 20070319
  Serious: Yes (Death, Hospitalization)
  Sender: FDA-Public Use
  Company Number: FR-GLAXOSMITHKLINE-B0446834A

PATIENT
  Age: 46 Year
  Sex: Female

DRUGS (1)
  1. ARIXTRA [Suspect]
     Indication: DEEP VEIN THROMBOSIS
     Dosage: 2.5MG PER DAY
     Route: 058
     Dates: start: 20060101

REACTIONS (11)
  - ACUTE LEUKAEMIA [None]
  - BRONCHIAL DISORDER [None]
  - CEREBRAL HAEMORRHAGE [None]
  - COMA [None]
  - DEPRESSED LEVEL OF CONSCIOUSNESS [None]
  - HAEMATOMA [None]
  - INCOHERENT [None]
  - INTRAVENTRICULAR HAEMORRHAGE [None]
  - SPEECH DISORDER [None]
  - SYNOVIAL CYST [None]
  - THROMBOCYTOPENIA [None]
